FAERS Safety Report 11620930 (Version 1)
Quarter: 2015Q4

REPORT INFORMATION
  Report Type: Spontaneous
  Country: FR (occurrence: FR)
  Receive Date: 20151012
  Receipt Date: 20151012
  Transmission Date: 20160304
  Serious: Yes (Other)
  Sender: FDA-Public Use
  Company Number: FR-GILEAD-2015-0176168

PATIENT
  Age: 68 Year
  Sex: Male

DRUGS (2)
  1. RITUXIMAB [Concomitant]
     Active Substance: RITUXIMAB
  2. ZYDELIG [Suspect]
     Active Substance: IDELALISIB
     Indication: LYMPHOCYTIC LYMPHOMA
     Dosage: 150 MG, BID
     Route: 065

REACTIONS (4)
  - Major depression [Recovering/Resolving]
  - Weight decreased [Recovering/Resolving]
  - Hepatotoxicity [Recovering/Resolving]
  - Fatigue [Recovering/Resolving]
